FAERS Safety Report 7597250-2 (Version None)
Quarter: 2011Q3

REPORT INFORMATION
  Report Type: 
  Country: None (occurrence: None)
  Receive Date: 20110708
  Receipt Date: 20101217
  Transmission Date: 20111222
  Serious: No
  Sender: FDA-Public Use
  Company Number: US-GLAXOSMITHKLINE-A0900378A

PATIENT
  Age: 75 Year
  Sex: Female

DRUGS (6)
  1. ESOMEPRAZOLE MAGNESIUM [Concomitant]
  2. INDAPAMIDE [Concomitant]
  3. FLOVENT [Suspect]
     Indication: DYSPNOEA
     Dosage: 4PUFF FOUR TIMES PER DAY
     Route: 055
     Dates: start: 20061201
  4. NORVASC [Concomitant]
  5. LISINOPRIL [Concomitant]
  6. POTASSIUM [Concomitant]

REACTIONS (1)
  - DRUG INEFFECTIVE [None]
